FAERS Safety Report 21740715 (Version 1)
Quarter: 2022Q4

REPORT INFORMATION
  Report Type: Report from Study
  Country: US (occurrence: US)
  Receive Date: 20221216
  Receipt Date: 20221216
  Transmission Date: 20230113
  Serious: No
  Sender: FDA-Public Use
  Company Number: US-ABBVIE-4200420

PATIENT
  Sex: Female

DRUGS (1)
  1. HUMIRA [Suspect]
     Active Substance: ADALIMUMAB
     Indication: Rheumatoid arthritis
     Dosage: EVENT ONSET: VERY FINE ITCHY BUMPS, DISCOMFORT WAS NOV 2022.
     Route: 058
     Dates: start: 20221106

REACTIONS (4)
  - Rash [Unknown]
  - Discomfort [Not Recovered/Not Resolved]
  - Papule [Not Recovered/Not Resolved]
  - Rash [Unknown]

NARRATIVE: CASE EVENT DATE: 20221107
